FAERS Safety Report 24628907 (Version 2)
Quarter: 2024Q4

REPORT INFORMATION
  Report Type: Report from Study
  Country: FR (occurrence: FR)
  Receive Date: 20241118
  Receipt Date: 20241119
  Transmission Date: 20250115
  Serious: Yes (Life-Threatening, Other)
  Sender: NOVARTIS
  Company Number: FR-002147023-NVSC2024FR216335

PATIENT
  Age: 40 Year
  Sex: Female

DRUGS (2)
  1. KISQALI [Suspect]
     Active Substance: RIBOCICLIB
     Indication: Product used for unknown indication
     Dosage: 600 MG (1 TO 14 DAYS)
     Route: 048
     Dates: start: 20241008, end: 20241021
  2. LETROZOLE [Concomitant]
     Active Substance: LETROZOLE
     Indication: Product used for unknown indication
     Dosage: 2.5 MG, QD (CYCLE1)
     Route: 048
     Dates: start: 20241008, end: 20241021

REACTIONS (3)
  - Neutropenia [Recovered/Resolved]
  - White blood cell count decreased [Unknown]
  - Lymphocyte count decreased [Unknown]

NARRATIVE: CASE EVENT DATE: 20241022
